FAERS Safety Report 4665892-X (Version None)
Quarter: 2005Q2

REPORT INFORMATION
  Report Type: 
  Country: None (occurrence: None)
  Receive Date: 20050516
  Receipt Date: 20050516
  Transmission Date: 20051028
  Serious: Yes (Hospitalization, Other)
  Sender: FDA-Public Use
  Company Number: None

PATIENT
  Sex: Male
  Weight: 106.59 kg

DRUGS (5)
  1. CAPECITABINE [Suspect]
     Dosage: 825 MG/M2 EVERY 12 HOURS, SEVEN DAYS A WEEK DURING XRT AND IV OXALIPLATIN
     Dates: start: 20041207, end: 20050119
  2. XRT [Suspect]
  3. OXALIPLATIN [Suspect]
     Dosage: 60 MG /M2  IV ON DAYS 1,8,15,22, AND 29
     Route: 042
     Dates: start: 20050104, end: 20050104
  4. LEUCOVORIN [Suspect]
     Dosage: 400 MG /M2 ON DAY 1 EVERY 14 DAYS
     Route: 042
  5. FLUOROURACIL [Suspect]
     Dosage: 400 MG/M2 ON DAY 1 , EVERY 14 DAYS
     Route: 040

REACTIONS (9)
  - ABSCESS [None]
  - COMPUTERISED TOMOGRAM ABNORMAL [None]
  - COUGH [None]
  - INFECTION [None]
  - METASTASES TO LYMPH NODES [None]
  - PYREXIA [None]
  - RESPIRATORY DISORDER [None]
  - SALIVARY HYPERSECRETION [None]
  - WOUND DRAINAGE [None]
